FAERS Safety Report 24637473 (Version 1)
Quarter: 2024Q4

REPORT INFORMATION
  Report Type: Spontaneous
  Country: DE (occurrence: DE)
  Receive Date: 20241119
  Receipt Date: 20241119
  Transmission Date: 20250115
  Serious: Yes (Other)
  Sender: AMGEN
  Company Number: DE-AMGEN-DEUSP2024224117

PATIENT

DRUGS (1)
  1. BEVACIZUMAB [Suspect]
     Active Substance: BEVACIZUMAB
     Indication: Optic neuropathy
     Dosage: 10 MILLIGRAM/KILOGRAM, Q2WK
     Route: 065

REACTIONS (12)
  - Xerophthalmia [Unknown]
  - Visual field defect [Unknown]
  - Drug effective for unapproved indication [Unknown]
  - Hypopituitarism [Unknown]
  - Lacrimation disorder [Unknown]
  - Visual acuity reduced [Unknown]
  - Vertigo [Unknown]
  - Nausea [Unknown]
  - Diplopia [Unknown]
  - Fatigue [Unknown]
  - Headache [Unknown]
  - Off label use [Unknown]
